FAERS Safety Report 6381458-8 (Version None)
Quarter: 2009Q3

REPORT INFORMATION
  Report Type: 
  Country: None (occurrence: None)
  Receive Date: 20090923
  Receipt Date: 20090918
  Transmission Date: 20100115
  Serious: Yes (Life-Threatening)
  Sender: FDA-Public Use
  Company Number: 2009SP025959

PATIENT
  Age: 54 Year
  Sex: Female
  Weight: 80 kg

DRUGS (3)
  1. MIRTAZAPINE [Suspect]
     Indication: DEPRESSION
     Dosage: ; PO
     Route: 048
     Dates: start: 20090306, end: 20090629
  2. CYMBALTA [Concomitant]
  3. ELONTRIL [Concomitant]

REACTIONS (5)
  - HAEMATOMA [None]
  - HYPOTHYROIDISM [None]
  - LEUKOPENIA [None]
  - MOUTH HAEMORRHAGE [None]
  - THROMBOCYTOPENIA [None]
